FAERS Safety Report 5964411-5 (Version None)
Quarter: 2008Q4

REPORT INFORMATION
  Report Type: 
  Country: None (occurrence: None)
  Receive Date: 20081124
  Receipt Date: 20081115
  Transmission Date: 20090506
  Serious: Yes (Other)
  Sender: FDA-Public Use
  Company Number: US-PFIZER INC-2008097116

PATIENT
  Sex: Female
  Weight: 52.2 kg

DRUGS (7)
  1. CHANTIX [Suspect]
     Indication: SMOKING CESSATION THERAPY
     Dates: start: 20081101
  2. CELEBREX [Suspect]
     Indication: ARTHRITIS
     Dates: start: 20081001, end: 20081101
  3. EFFEXOR [Suspect]
     Indication: DEPRESSION
  4. ADDERALL 10 [Suspect]
     Indication: ATTENTION DEFICIT/HYPERACTIVITY DISORDER
  5. BUSPAR [Suspect]
  6. VALIUM [Suspect]
  7. DEPAKOTE [Concomitant]

REACTIONS (4)
  - CARDIAC DISORDER [None]
  - DEPRESSION [None]
  - DYSPNOEA [None]
  - SUICIDAL IDEATION [None]
